FAERS Safety Report 10048000 (Version 2)
Quarter: 2014Q2

REPORT INFORMATION
  Report Type: Spontaneous
  Country: IN (occurrence: IN)
  Receive Date: 20140331
  Receipt Date: 20140402
  Transmission Date: 20141212
  Serious: Yes (Death)
  Sender: FDA-Public Use
  Company Number: IN-BAYER-2014-047149

PATIENT
  Age: 65 Year
  Sex: Female

DRUGS (2)
  1. ULTRAVIST [Suspect]
     Indication: URINARY SYSTEM X-RAY
     Dosage: 40 ML, ONCE
     Route: 042
     Dates: start: 20140311, end: 20140311
  2. ULTRAVIST [Suspect]
     Indication: PELVI-URETERIC OBSTRUCTION

REACTIONS (3)
  - Pulmonary oedema [Fatal]
  - Laryngospasm [Fatal]
  - Dyspnoea [Fatal]
